FAERS Safety Report 14125211 (Version 1)
Quarter: 2017Q4

REPORT INFORMATION
  Report Type: Report from Study
  Country: DE (occurrence: DE)
  Receive Date: 20171025
  Receipt Date: 20171025
  Transmission Date: 20180321
  Serious: Yes (Life-Threatening, Hospitalization, Other)
  Sender: FDA-Public Use
  Company Number: DE-BRISTOL-MYERS SQUIBB COMPANY-BMS-2017-093272

PATIENT
  Age: 37 Year
  Sex: Female

DRUGS (2)
  1. IBUPROFEN. [Concomitant]
     Active Substance: IBUPROFEN
     Indication: PRODUCT USED FOR UNKNOWN INDICATION
     Dosage: 600 MG, QD
     Route: 065
  2. APIXABAN [Suspect]
     Active Substance: APIXABAN
     Indication: THROMBOSIS PROPHYLAXIS
     Dosage: UNK
     Route: 065
     Dates: end: 20170928

REACTIONS (13)
  - Cardiac arrest [Recovered/Resolved]
  - Pneumonitis [Unknown]
  - Bradycardia [Recovering/Resolving]
  - Haemodynamic instability [Unknown]
  - Haemorrhage [Recovered/Resolved]
  - Respiratory disorder [Unknown]
  - Intentional self-injury [Unknown]
  - Laceration [Recovered/Resolved]
  - Circulatory collapse [Recovering/Resolving]
  - Toxicity to various agents [Unknown]
  - Overdose [Unknown]
  - Suicide attempt [Unknown]
  - Treatment noncompliance [Unknown]

NARRATIVE: CASE EVENT DATE: 20170929
